FAERS Safety Report 8208126-1 (Version None)
Quarter: 2012Q1

REPORT INFORMATION
  Report Type: 
  Country: None (occurrence: None)
  Receive Date: 20120314
  Receipt Date: 20120307
  Transmission Date: 20120608
  Serious: Yes (Hospitalization, Other)
  Sender: FDA-Public Use
  Company Number: PHHY2012NZ014755

PATIENT
  Sex: Female
  Weight: 73 kg

DRUGS (1)
  1. ZOLEDRONOC ACID [Suspect]
     Indication: OSTEOPOROSIS
     Dosage: UNK UKN, UNK
     Route: 042
     Dates: start: 20111021

REACTIONS (19)
  - MUSCULOSKELETAL STIFFNESS [None]
  - SOMNOLENCE [None]
  - BONE PAIN [None]
  - FALL [None]
  - PAIN [None]
  - HYPONATRAEMIA [None]
  - BLOOD OSMOLARITY DECREASED [None]
  - UNRESPONSIVE TO STIMULI [None]
  - VOMITING [None]
  - CONVULSION [None]
  - LIGAMENT SPRAIN [None]
  - CHILLS [None]
  - ARTHRALGIA [None]
  - FOAMING AT MOUTH [None]
  - NAUSEA [None]
  - WEIGHT BEARING DIFFICULTY [None]
  - C-REACTIVE PROTEIN INCREASED [None]
  - MALAISE [None]
  - BLOOD BILIRUBIN INCREASED [None]
